FAERS Safety Report 13190370 (Version 1)
Quarter: 2017Q1

REPORT INFORMATION
  Report Type: Spontaneous
  Country: US (occurrence: US)
  Receive Date: 20170206
  Receipt Date: 20170206
  Transmission Date: 20170428
  Serious: Yes (Other)
  Sender: FDA-Public Use
  Company Number: US-BAUSCH-BL-2017-002308

PATIENT
  Age: 13 Year
  Sex: Male

DRUGS (2)
  1. ACNEFREE CLEAR SKIN TREATMENTS 24 HOUR ACNE CLEARING SYSTEM [Suspect]
     Active Substance: BENZOYL PEROXIDE
     Indication: ACNE
     Dosage: AT NIGHT
     Route: 061
     Dates: start: 201701, end: 20170125
  2. ACNEFREE CLEAR SKIN TREATMENTS 24 HOUR ACNE CLEARING SYSTEM [Suspect]
     Active Substance: BENZOYL PEROXIDE
     Indication: ACNE
     Dosage: AT NIGHT
     Route: 061
     Dates: start: 201701, end: 20170125

REACTIONS (3)
  - Application site swelling [Recovering/Resolving]
  - Hypersensitivity [Recovering/Resolving]
  - Urticaria [Not Recovered/Not Resolved]

NARRATIVE: CASE EVENT DATE: 20170125
